FAERS Safety Report 14204623 (Version 1)
Quarter: 2017Q4

REPORT INFORMATION
  Report Type: Spontaneous
  Country: US (occurrence: None)
  Receive Date: 20171118
  Receipt Date: 20171118
  Transmission Date: 20180321
  Serious: Yes (Hospitalization)
  Sender: FDA-Public Use
  Company Number: None

PATIENT
  Age: 65 Year
  Sex: Male

DRUGS (7)
  1. PANTOPRAZOLE [Concomitant]
     Active Substance: PANTOPRAZOLE
  2. ASPIRIN. [Concomitant]
     Active Substance: ASPIRIN
  3. NITROGLYCERIN. [Concomitant]
     Active Substance: NITROGLYCERIN
  4. LEVETIRACETAM. [Concomitant]
     Active Substance: LEVETIRACETAM
  5. GLIPIZIDE. [Concomitant]
     Active Substance: GLIPIZIDE
  6. METOPROLOL. [Concomitant]
     Active Substance: METOPROLOL
  7. MEGACE [Suspect]
     Active Substance: MEGESTROL ACETATE
     Dates: end: 20150302

REACTIONS (9)
  - Drug-induced liver injury [None]
  - Laboratory test abnormal [None]
  - Hepatitis C virus test positive [None]
  - Asthenia [None]
  - Pruritus [None]
  - Hepatic enzyme abnormal [None]
  - Cholestasis [None]
  - Hepatitis cholestatic [None]
  - Portal fibrosis [None]

NARRATIVE: CASE EVENT DATE: 20150107
